FAERS Safety Report 12352258 (Version 3)
Quarter: 2016Q2

REPORT INFORMATION
  Report Type: Spontaneous
  Country: US (occurrence: US)
  Receive Date: 20160510
  Receipt Date: 20160609
  Transmission Date: 20160815
  Serious: No
  Sender: FDA-Public Use
  Company Number: US-BAYER-2016-084741

PATIENT
  Sex: Female

DRUGS (11)
  1. GABAPENTIN. [Concomitant]
     Active Substance: GABAPENTIN
  2. PREMARIN [Concomitant]
     Active Substance: ESTROGENS, CONJUGATED
  3. VITAMIN D [Concomitant]
     Active Substance: CHOLECALCIFEROL
  4. ALPRAZOLAM. [Concomitant]
     Active Substance: ALPRAZOLAM
  5. RIZATRIPTAN. [Concomitant]
     Active Substance: RIZATRIPTAN
  6. FISH OIL [Concomitant]
     Active Substance: FISH OIL
  7. SERTRALINE HYDROCHLORIDE. [Concomitant]
     Active Substance: SERTRALINE HYDROCHLORIDE
  8. BETASERON [Suspect]
     Active Substance: INTERFERON BETA-1B
     Indication: MULTIPLE SCLEROSIS
     Dosage: 0.3 MG, QOD
     Route: 058
  9. COQ10 [Concomitant]
     Active Substance: UBIDECARENONE
  10. MULTIVITAMIN [Concomitant]
     Active Substance: VITAMINS
  11. IBUPROFEN. [Concomitant]
     Active Substance: IBUPROFEN

REACTIONS (5)
  - Drug ineffective [None]
  - Influenza like illness [None]
  - Anti-interferon antibody positive [None]
  - Injection site reaction [None]
  - Muscle spasms [None]
